FAERS Safety Report 8791172 (Version 1)
Quarter: 2012Q4

REPORT INFORMATION
  Report Type: Spontaneous
  Country: US (occurrence: None)
  Receive Date: 20120914
  Receipt Date: 20120914
  Transmission Date: 20130627
  Serious: Yes (Hospitalization)
  Sender: FDA-Public Use
  Company Number: None

PATIENT
  Age: 53 Year
  Sex: Male
  Weight: 83.3 kg

DRUGS (4)
  1. ASA [Suspect]
     Indication: CORONARY ARTERY DISEASE
     Dosage: 81MG DAILY PO
CHRONIC
     Route: 048
  2. SIMVASTATIN [Concomitant]
  3. MVI [Concomitant]
  4. CITRACAL [Concomitant]

REACTIONS (2)
  - Melaena [None]
  - Vitello-intestinal duct remnant [None]
